FAERS Safety Report 25122200 (Version 1)
Quarter: 2025Q1

REPORT INFORMATION
  Report Type: Spontaneous
  Country: US (occurrence: US)
  Receive Date: 20250326
  Receipt Date: 20250326
  Transmission Date: 20250408
  Serious: No
  Sender: Kenvue
  Company Number: US-KENVUE-20250206875

PATIENT
  Age: 87 Year
  Sex: Female

DRUGS (1)
  1. ZYRTEC [Suspect]
     Active Substance: CETIRIZINE HYDROCHLORIDE
     Indication: Neurodermatitis
     Dosage: 1 DOSAGE FORM, ONCE A DAY (ONCE BEFORE BEDTIME)
     Route: 065
     Dates: start: 20240912

REACTIONS (2)
  - Off label use [Unknown]
  - Product packaging difficult to open [Unknown]

NARRATIVE: CASE EVENT DATE: 20240912
